FAERS Safety Report 8533454-X (Version None)
Quarter: 2012Q3

REPORT INFORMATION
  Report Type: 
  Country: None (occurrence: None)
  Receive Date: 20120724
  Receipt Date: 20120712
  Transmission Date: 20120928
  Serious: Yes (Other)
  Sender: FDA-Public Use
  Company Number: JP-SANOFI-AVENTIS-2012SA051730

PATIENT
  Age: 84 Year
  Sex: Female

DRUGS (9)
  1. SEROQUEL [Suspect]
     Route: 048
     Dates: end: 20120709
  2. DIART [Concomitant]
  3. CANDESARTAN CILEXETIL [Concomitant]
  4. WARFARIN SODIUM [Concomitant]
     Route: 048
  5. ETIZOLAM [Concomitant]
  6. SENNOSIDE A+B [Concomitant]
     Route: 048
  7. ZOLPIDEM [Suspect]
     Indication: INSOMNIA
     Route: 048
  8. SPIRONOLACTONE [Concomitant]
     Route: 048
  9. CLOTIAZEPAM [Concomitant]
     Route: 048

REACTIONS (2)
  - PULMONARY EMBOLISM [None]
  - INTENTIONAL DRUG MISUSE [None]
